FAERS Safety Report 12379234 (Version 1)
Quarter: 2016Q2

REPORT INFORMATION
  Report Type: Spontaneous
  Country: US (occurrence: US)
  Receive Date: 20160517
  Receipt Date: 20160517
  Transmission Date: 20160815
  Serious: No
  Sender: FDA-Public Use
  Company Number: US-RELYPSA-RLY2016000359

PATIENT

DRUGS (12)
  1. VELTASSA [Suspect]
     Active Substance: PATIROMER
     Indication: HYPERKALAEMIA
     Dosage: 8.4 G, QD
     Route: 048
  2. ENALAPRIL MALEATE. [Concomitant]
     Active Substance: ENALAPRIL MALEATE
  3. FINASTERIDE. [Concomitant]
     Active Substance: FINASTERIDE
  4. ISOSORBIDE DINITRATE. [Concomitant]
     Active Substance: ISOSORBIDE DINITRATE
  5. CARVEDILOL. [Concomitant]
     Active Substance: CARVEDILOL
  6. TAMSULOSIN HCL [Concomitant]
     Active Substance: TAMSULOSIN
  7. MULTIVITAMINUM [Concomitant]
  8. NITROSTAT [Concomitant]
     Active Substance: NITROGLYCERIN
  9. RANEXA [Concomitant]
     Active Substance: RANOLAZINE
  10. TORSEMIDE. [Concomitant]
     Active Substance: TORSEMIDE
  11. WELCHOL [Concomitant]
     Active Substance: COLESEVELAM HYDROCHLORIDE
  12. SPIRONOLACTONE. [Concomitant]
     Active Substance: SPIRONOLACTONE

REACTIONS (1)
  - Blood potassium increased [Unknown]
